FAERS Safety Report 16039396 (Version 1)
Quarter: 2019Q1

REPORT INFORMATION
  Report Type: Spontaneous
  Country: DK (occurrence: DK)
  Receive Date: 20190306
  Receipt Date: 20190306
  Transmission Date: 20190418
  Serious: Yes (Hospitalization)
  Sender: FDA-Public Use
  Company Number: DK-TEVA-2019-DK-1018397

PATIENT
  Age: 48 Year
  Sex: Female

DRUGS (1)
  1. RISOLID [Suspect]
     Active Substance: CHLORDIAZEPOXIDE
     Indication: ANXIETY
     Dosage: STRENGTH: 10 MG. DOSE: VARYING (HIGHEST DAILY DOSE: 25 MG 3 TIMES DAILY)
     Route: 048
     Dates: start: 2013

REACTIONS (10)
  - Social avoidant behaviour [Unknown]
  - Dyspnoea [Unknown]
  - Arrhythmia [Unknown]
  - Weight increased [Unknown]
  - Suicidal ideation [Unknown]
  - Overweight [Unknown]
  - Anxiety [Unknown]
  - Drug dependence [Unknown]
  - Muscular weakness [Unknown]
  - Syncope [Unknown]

NARRATIVE: CASE EVENT DATE: 201509
